FAERS Safety Report 21442720 (Version 1)
Quarter: 2022Q4

REPORT INFORMATION
  Report Type: Spontaneous
  Country: IL (occurrence: IL)
  Receive Date: 20221012
  Receipt Date: 20221012
  Transmission Date: 20230113
  Serious: Yes (Other)
  Sender: FDA-Public Use
  Company Number: IL-NOVARTISPH-NVSC2022IL226505

PATIENT
  Age: 58 Year
  Sex: Male

DRUGS (8)
  1. FLUDARABINE PHOSPHATE [Suspect]
     Active Substance: FLUDARABINE PHOSPHATE
     Indication: Forced expiratory volume decreased
     Dosage: UNK
     Route: 065
  2. FLUDARABINE PHOSPHATE [Suspect]
     Active Substance: FLUDARABINE PHOSPHATE
     Indication: Ejection fraction decreased
  3. FLUDARABINE PHOSPHATE [Suspect]
     Active Substance: FLUDARABINE PHOSPHATE
     Indication: Graft versus host disease
  4. CYCLOSPORINE [Suspect]
     Active Substance: CYCLOSPORINE
     Indication: Product used for unknown indication
     Dosage: UNK
     Route: 065
  5. CYCLOSPORINE [Suspect]
     Active Substance: CYCLOSPORINE
     Dosage: UNK (RAPID TAPER OF CSA)
     Route: 065
  6. TREOSULFAN [Suspect]
     Active Substance: TREOSULFAN
     Indication: Forced expiratory volume decreased
     Dosage: UNK
     Route: 065
  7. TREOSULFAN [Suspect]
     Active Substance: TREOSULFAN
     Indication: Ejection fraction decreased
  8. TREOSULFAN [Suspect]
     Active Substance: TREOSULFAN
     Indication: Graft versus host disease

REACTIONS (5)
  - Chronic graft versus host disease [Unknown]
  - Erythema [Unknown]
  - Eye disorder [Unknown]
  - Weight decreased [Unknown]
  - Product use in unapproved indication [Unknown]
